FAERS Safety Report 7171294-7 (Version None)
Quarter: 2010Q4

REPORT INFORMATION
  Report Type: 
  Country: None (occurrence: None)
  Receive Date: 20101217
  Receipt Date: 20101211
  Transmission Date: 20110411
  Serious: Yes (Other)
  Sender: FDA-Public Use
  Company Number: US-ABBOTT-10P-163-0691277-00

PATIENT
  Age: 47 Year
  Sex: Female

DRUGS (12)
  1. HUMIRA [Suspect]
     Indication: CROHN'S DISEASE
     Dates: start: 20100904
  2. DEPAKOTE [Concomitant]
     Indication: CONVULSION
  3. DEPAKOTE [Concomitant]
     Indication: MIGRAINE
  4. SYNTHROID [Concomitant]
     Indication: HYPOTHYROIDISM
  5. TOPAMAX [Concomitant]
     Indication: MIGRAINE
  6. IMURAN [Concomitant]
     Indication: BLADDER DISORDER
  7. SEROQUEL [Concomitant]
     Indication: DEPRESSION
  8. ATIVAN [Concomitant]
     Indication: ANXIETY
  9. NEXIUM [Concomitant]
     Indication: GASTROOESOPHAGEAL REFLUX DISEASE
  10. NORVASC [Concomitant]
     Indication: HYPERTENSION
  11. LEXAPRO [Concomitant]
     Indication: DEPRESSION
  12. UNKNOWN OSTEOPOROSIS MEDICATION [Concomitant]
     Indication: OSTEOPOROSIS

REACTIONS (3)
  - ABASIA [None]
  - BACK PAIN [None]
  - EXOSTOSIS [None]
